FAERS Safety Report 4365937-0 (Version None)
Quarter: 2004Q2

REPORT INFORMATION
  Report Type: 
  Country: None (occurrence: None)
  Receive Date: 20040524
  Receipt Date: 20040513
  Transmission Date: 20050107
  Serious: Yes (Congenital Anomaly)
  Sender: FDA-Public Use
  Company Number: 7988

PATIENT
  Sex: Female

DRUGS (3)
  1. BLEOMYCIN [Suspect]
     Indication: YOLK SAC TUMOUR SITE UNSPECIFIED
  2. CISPLATIN [Suspect]
     Indication: YOLK SAC TUMOUR SITE UNSPECIFIED
  3. ETOPOSIDE [Suspect]
     Indication: YOLK SAC TUMOUR SITE UNSPECIFIED

REACTIONS (8)
  - CAESAREAN SECTION [None]
  - CEREBRAL ATROPHY CONGENITAL [None]
  - CEREBRAL VENTRICLE DILATATION [None]
  - DRUG EXPOSURE DURING PREGNANCY [None]
  - FOETAL CEREBROVASCULAR DISORDER [None]
  - FOETAL HAEMOGLOBIN DECREASED [None]
  - NEONATAL DISORDER [None]
  - PLATELET COUNT DECREASED [None]
